FAERS Safety Report 9384301 (Version 1)
Quarter: 2013Q3

REPORT INFORMATION
  Report Type: Report from Study
  Country: US (occurrence: US)
  Receive Date: 20130705
  Receipt Date: 20130705
  Transmission Date: 20140515
  Serious: No
  Sender: FDA-Public Use
  Company Number: PHEH2013US006179

PATIENT
  Age: 89 Year
  Sex: Female

DRUGS (3)
  1. TASIGNA [Suspect]
     Indication: CHRONIC MYELOID LEUKAEMIA
     Dosage: 300 MG, BID
     Route: 048
     Dates: start: 20121019
  2. ZOFRAN [Concomitant]
  3. OXYGEN [Concomitant]

REACTIONS (6)
  - Abscess [Unknown]
  - Alopecia [Recovered/Resolved]
  - Rash [Unknown]
  - Skin ulcer [Unknown]
  - Pain [Unknown]
  - Nausea [Unknown]
